FAERS Safety Report 22382896 (Version 3)
Quarter: 2023Q2

REPORT INFORMATION
  Report Type: Report from Study
  Country: US (occurrence: US)
  Receive Date: 20230530
  Receipt Date: 20230606
  Transmission Date: 20230721
  Serious: No
  Sender: FDA-Public Use
  Company Number: US-002147023-NVSC2023US122775

PATIENT
  Sex: Male

DRUGS (5)
  1. COSENTYX [Suspect]
     Active Substance: SECUKINUMAB
     Indication: Psoriasis
     Dosage: UNK
     Route: 065
  2. PREGABALIN [Suspect]
     Active Substance: PREGABALIN
     Indication: Psoriasis
     Dosage: UNK
     Route: 065
  3. HYDROCODONE [Concomitant]
     Active Substance: HYDROCODONE
     Indication: Psoriasis
     Dosage: UNK
     Route: 065
  4. SERTRALINE [Concomitant]
     Active Substance: SERTRALINE HYDROCHLORIDE
     Indication: Psoriasis
     Dosage: UNK
     Route: 065
  5. TIZANIDINE [Concomitant]
     Active Substance: TIZANIDINE
     Indication: Psoriasis
     Dosage: UNK
     Route: 065

REACTIONS (13)
  - Post-traumatic stress disorder [Unknown]
  - Photodermatosis [Unknown]
  - Arthralgia [Unknown]
  - Psoriasis [Recovering/Resolving]
  - Skin lesion [Unknown]
  - Skin irritation [Unknown]
  - Skin exfoliation [Not Recovered/Not Resolved]
  - Erythema [Not Recovered/Not Resolved]
  - Pain of skin [Not Recovered/Not Resolved]
  - Guttate psoriasis [Unknown]
  - Papule [Unknown]
  - Product use in unapproved indication [Unknown]
  - Drug ineffective [Unknown]
